FAERS Safety Report 26139248 (Version 1)
Quarter: 2025Q4

REPORT INFORMATION
  Report Type: Other
  Country: EU (occurrence: EU)
  Receive Date: 20251210
  Receipt Date: 20251210
  Transmission Date: 20260118
  Serious: Yes (Hospitalization)
  Sender: MACLEODS
  Company Number: None

PATIENT

DRUGS (2)
  1. PANTOPRAZOLE [Suspect]
     Active Substance: PANTOPRAZOLE
     Indication: Hiatus hernia
     Dosage: 40MGX1/J
     Route: 048
     Dates: start: 2020
  2. TOPIRAMATE [Suspect]
     Active Substance: TOPIRAMATE
     Indication: Mental disorder
     Dosage: 100MG/J
     Route: 065
     Dates: start: 2019

REACTIONS (2)
  - Nephrolithiasis [Not Recovered/Not Resolved]
  - Off label use [Not Recovered/Not Resolved]

NARRATIVE: CASE EVENT DATE: 20190101
